FAERS Safety Report 13720940 (Version 1)
Quarter: 2017Q3

REPORT INFORMATION
  Report Type: Spontaneous
  Country: GB (occurrence: GB)
  Receive Date: 20170706
  Receipt Date: 20170706
  Transmission Date: 20171127
  Serious: Yes (Disabling, Other)
  Sender: FDA-Public Use
  Company Number: GB-AXELLIA-001138

PATIENT
  Age: 56 Year
  Sex: Female
  Weight: 56.69 kg

DRUGS (7)
  1. VANCOMYCIN [Suspect]
     Active Substance: VANCOMYCIN
     Indication: CLOSTRIDIUM DIFFICILE INFECTION
     Route: 048
     Dates: start: 20170610, end: 20170610
  2. AMOXICILLIN SODIUM/CLAVULANATE POTASSIUM [Concomitant]
     Dosage: IV THEN ORAL FOR 10 DAYS IN HOSPITAL
     Route: 042
  3. LEVOFLOXACIN/LEVOFLOXACIN MESYLATE [Concomitant]
  4. METRONIDAZOLE. [Concomitant]
     Active Substance: METRONIDAZOLE
  5. RAMIPRIL. [Concomitant]
     Active Substance: RAMIPRIL
  6. PREMARIN [Concomitant]
     Active Substance: ESTROGENS, CONJUGATED
     Indication: HORMONE REPLACEMENT THERAPY
     Dates: start: 2000
  7. BISOPROLOL [Concomitant]
     Active Substance: BISOPROLOL

REACTIONS (8)
  - Mental impairment [Recovered/Resolved]
  - Aphasia [Recovered/Resolved]
  - Headache [Unknown]
  - Hypersensitivity [Recovered/Resolved]
  - Cognitive disorder [Recovered/Resolved with Sequelae]
  - Disorientation [Recovered/Resolved]
  - Dizziness [Recovered/Resolved]
  - Gait inability [Recovered/Resolved]

NARRATIVE: CASE EVENT DATE: 20170610
